FAERS Safety Report 12889671 (Version 1)
Quarter: 2016Q4

REPORT INFORMATION
  Report Type: Report from Study
  Country: GB (occurrence: GB)
  Receive Date: 20161027
  Receipt Date: 20161027
  Transmission Date: 20170207
  Serious: Yes (Other)
  Sender: FDA-Public Use
  Company Number: GB-JNJFOC-20161016457

PATIENT
  Sex: Female

DRUGS (1)
  1. STELARA [Suspect]
     Active Substance: USTEKINUMAB
     Indication: PSORIASIS
     Route: 058

REACTIONS (9)
  - Dry mouth [Unknown]
  - Dysgeusia [Unknown]
  - Myalgia [Unknown]
  - Fatigue [Unknown]
  - Pollakiuria [Unknown]
  - Syncope [Recovered/Resolved]
  - Dizziness [Recovered/Resolved]
  - Skin lesion [Unknown]
  - Abdominal discomfort [Unknown]
